FAERS Safety Report 13922286 (Version 1)
Quarter: 2017Q3

REPORT INFORMATION
  Report Type: Spontaneous
  Country: CA (occurrence: CA)
  Receive Date: 20170830
  Receipt Date: 20170830
  Transmission Date: 20171127
  Serious: Yes (Hospitalization, Other)
  Sender: FDA-Public Use
  Company Number: CA-GILEAD-2017-0291011

PATIENT
  Age: 52 Year
  Sex: Female
  Weight: 65 kg

DRUGS (14)
  1. HYDROMORPHONE [Concomitant]
     Active Substance: HYDROMORPHONE
  2. DILAUDID [Concomitant]
     Active Substance: HYDROMORPHONE HYDROCHLORIDE
  3. NAPROXEN. [Concomitant]
     Active Substance: NAPROXEN
  4. SULFASALAZINE. [Concomitant]
     Active Substance: SULFASALAZINE
  5. DIVALPROEX SODIUM. [Concomitant]
     Active Substance: DIVALPROEX SODIUM
  6. ZOFRAN [Concomitant]
     Active Substance: ONDANSETRON HYDROCHLORIDE
  7. PANTOPRAZOLE [Concomitant]
     Active Substance: PANTOPRAZOLE
  8. TRAZODONE [Concomitant]
     Active Substance: TRAZODONE HYDROCHLORIDE
  9. EPCLUSA [Suspect]
     Active Substance: SOFOSBUVIR\VELPATASVIR
     Indication: HEPATITIS C
     Dosage: 1 DF, QD
     Route: 048
  10. CRESTOR [Concomitant]
     Active Substance: ROSUVASTATIN CALCIUM
  11. RAMIPRIL. [Concomitant]
     Active Substance: RAMIPRIL
  12. REMICADE [Concomitant]
     Active Substance: INFLIXIMAB
  13. SENOKOT [Concomitant]
     Active Substance: SENNOSIDES
  14. CLONAZEPAM. [Concomitant]
     Active Substance: CLONAZEPAM

REACTIONS (5)
  - Musculoskeletal disorder [Recovered/Resolved]
  - Constipation [Recovered/Resolved]
  - Angina unstable [Recovered/Resolved]
  - Hypomagnesaemia [Recovered/Resolved]
  - Pancreatitis [Recovered/Resolved]
